FAERS Safety Report 7948803-0 (Version None)
Quarter: 2011Q4

REPORT INFORMATION
  Report Type: 
  Country: None (occurrence: None)
  Receive Date: 20111130
  Receipt Date: 20111123
  Transmission Date: 20120403
  Serious: Yes (Other)
  Sender: FDA-Public Use
  Company Number: CN-PFIZER INC-2011287181

PATIENT
  Age: 14 Year
  Sex: Male

DRUGS (2)
  1. CLINDAMYCIN PHOSPHATE [Suspect]
     Indication: PYREXIA
     Dosage: 0.6 G, UNK
     Route: 041
  2. CLINDAMYCIN PHOSPHATE [Suspect]
     Indication: OROPHARYNGEAL PAIN

REACTIONS (1)
  - HAEMATURIA [None]
